FAERS Safety Report 7784997-8 (Version None)
Quarter: 2011Q3

REPORT INFORMATION
  Report Type: 
  Country: None (occurrence: None)
  Receive Date: 20110928
  Receipt Date: 20110921
  Transmission Date: 20111222
  Serious: Yes (Hospitalization, Other)
  Sender: FDA-Public Use
  Company Number: PHEH2011US03881

PATIENT
  Sex: Female
  Weight: 73 kg

DRUGS (17)
  1. RECLAST [Suspect]
     Dosage: 5 MG, YEARLY
     Route: 042
     Dates: start: 20110629
  2. ASCORBIC ACID [Concomitant]
     Dosage: 500 MG, QD
  3. PROTONIX [Concomitant]
     Dosage: 40 MG, QD
  4. ASCORBIC ACID [Concomitant]
     Dosage: 1000 MG, QD
  5. HYDROCODONE [Concomitant]
     Dosage: 10 MG, TID
  6. CALCIUM CARBONATE [Concomitant]
  7. LEVOXYL [Concomitant]
     Dosage: 75 UG, QD
  8. VALIUM [Concomitant]
     Dosage: 10 MG, UNK
  9. ATROVENT [Concomitant]
  10. RECLAST [Suspect]
     Indication: OSTEOPOROSIS
     Dosage: 5 MG, YEARLY
     Route: 042
     Dates: start: 20100512
  11. LEXAPRO [Concomitant]
     Dosage: 20 MG, QD
  12. TOVIAZ [Concomitant]
     Dosage: 4 MG, QD
  13. ACTOS [Concomitant]
     Dosage: 30 MG, QD
  14. ESCITALOPRAM [Concomitant]
     Dosage: 20 MG, QD
  15. CRESTOR [Concomitant]
     Dosage: 40 MG, QD
  16. METFORMIN HCL [Concomitant]
     Dosage: 1000 MG, QD
  17. VITAMIN B-12 [Concomitant]
     Dosage: 1000 UG, QD

REACTIONS (13)
  - CONFUSIONAL STATE [None]
  - HAEMOGLOBIN DECREASED [None]
  - MONARTHRITIS [None]
  - MYALGIA [None]
  - BLOOD CREATININE INCREASED [None]
  - HAEMATOCRIT DECREASED [None]
  - ARTHRITIS [None]
  - ARTHRALGIA [None]
  - FALL [None]
  - BLOOD UREA INCREASED [None]
  - RENAL FAILURE ACUTE [None]
  - ASTHENIA [None]
  - BLOOD ALBUMIN DECREASED [None]
